FAERS Safety Report 18390239 (Version 3)
Quarter: 2020Q4

REPORT INFORMATION
  Report Type: Spontaneous
  Country: US (occurrence: US)
  Receive Date: 20201016
  Receipt Date: 20201211
  Transmission Date: 20210114
  Serious: Yes (Hospitalization)
  Sender: FDA-Public Use
  Company Number: US-SAREPTA THERAPEUTICS INC.-SRP2020-000902

PATIENT
  Age: 17 Year
  Sex: Male
  Weight: 53.97 kg

DRUGS (12)
  1. PRINCIPEN [AMPICILLIN] [Concomitant]
     Indication: PRODUCT USED FOR UNKNOWN INDICATION
     Dosage: 500 MILLIGRAM, Q6H
     Route: 048
  2. DEFLAZACORT [Concomitant]
     Active Substance: DEFLAZACORT
     Indication: PRODUCT USED FOR UNKNOWN INDICATION
     Dosage: 36 MILLIGRAM, QD ONLY ON WEEKENDS
     Route: 048
     Dates: start: 2020
  3. FLONASE ALLERGY RELIEF [Concomitant]
     Active Substance: FLUTICASONE PROPIONATE
     Indication: PRODUCT USED FOR UNKNOWN INDICATION
     Dosage: 1 SPRAY NASAL, QD
     Route: 045
  4. COREG [Concomitant]
     Active Substance: CARVEDILOL
     Indication: PRODUCT USED FOR UNKNOWN INDICATION
     Dosage: 25 MILLIGRAM, BID
     Route: 048
  5. EXONDYS 51 [Suspect]
     Active Substance: ETEPLIRSEN
     Indication: DUCHENNE MUSCULAR DYSTROPHY
     Dosage: 1800 MG (30 MG/KG), WEEKLY
     Route: 042
     Dates: start: 20161108
  6. EXONDYS 51 [Suspect]
     Active Substance: ETEPLIRSEN
     Dosage: 1750 MILLIGRAM, WEEKLY
     Route: 042
     Dates: start: 20161108
  7. LISINOPRIL. [Concomitant]
     Active Substance: LISINOPRIL
     Dosage: 2.5 MILLIGRAM, QD
     Route: 048
     Dates: start: 20201017
  8. DEFLAZACORT [Concomitant]
     Active Substance: DEFLAZACORT
     Dosage: 42 MILLIGRAM, QD
     Route: 048
     Dates: start: 2015
  9. LISINOPRIL. [Concomitant]
     Active Substance: LISINOPRIL
     Indication: PRODUCT USED FOR UNKNOWN INDICATION
     Dosage: 5 MILLIGRAM, QD
     Route: 048
     Dates: end: 20201017
  10. PREDNISONE. [Concomitant]
     Active Substance: PREDNISONE
     Indication: PRODUCT USED FOR UNKNOWN INDICATION
  11. DEFLAZACORT [Concomitant]
     Active Substance: DEFLAZACORT
     Dosage: 36 MILLIGRAM, QD
     Route: 048
  12. VITAMIN D3 [Concomitant]
     Active Substance: CHOLECALCIFEROL
     Indication: PRODUCT USED FOR UNKNOWN INDICATION
     Dosage: 500 UNITS, QD
     Route: 048

REACTIONS (19)
  - Vital functions abnormal [Not Recovered/Not Resolved]
  - Impaired healing [Unknown]
  - Cardiomyopathy [Unknown]
  - Hypotension [Recovered/Resolved]
  - Glucocorticoid deficiency [Unknown]
  - Fatigue [Unknown]
  - Cardiac failure acute [Recovering/Resolving]
  - Pulmonary oedema [Recovering/Resolving]
  - Peripheral swelling [Unknown]
  - Sleep apnoea syndrome [Unknown]
  - Ejection fraction decreased [Recovering/Resolving]
  - Decreased activity [Unknown]
  - Arthralgia [Unknown]
  - Skin laceration [Unknown]
  - Decreased appetite [Unknown]
  - Dyspnoea [Unknown]
  - Osteopenia [Unknown]
  - Back pain [Unknown]
  - Blood pressure orthostatic abnormal [Not Recovered/Not Resolved]

NARRATIVE: CASE EVENT DATE: 2020
